FAERS Safety Report 19687164 (Version 1)
Quarter: 2021Q3

REPORT INFORMATION
  Report Type: Spontaneous
  Country: DE (occurrence: DE)
  Receive Date: 20210811
  Receipt Date: 20210811
  Transmission Date: 20211014
  Serious: Yes (Other)
  Sender: FDA-Public Use
  Company Number: NVSC2021DE176661

PATIENT
  Age: 31 Year
  Sex: Female

DRUGS (3)
  1. WICK [Suspect]
     Active Substance: CAMPHOR
     Indication: PRODUCT USED FOR UNKNOWN INDICATION
     Dosage: UNK (1 BOTTLE)
     Route: 048
     Dates: start: 20210630, end: 20210630
  2. IBUPROFEN. [Suspect]
     Active Substance: IBUPROFEN
     Indication: PRODUCT USED FOR UNKNOWN INDICATION
     Dosage: 20 DF, QD (20 TABLET, 1 ONLY)
     Route: 048
     Dates: start: 20210630, end: 20210630
  3. VITAMIN B COMPLEX [Suspect]
     Active Substance: CYANOCOBALAMIN\DEXPANTHENOL\NIACINAMIDE\PYRIDOXINE HYDROCHLORIDE\RIBOFLAVIN 5^-PHOSPHATE SODIUM\THIAMINE HYDROCHLORIDE\VITAMIN B COMPLEX
     Indication: PRODUCT USED FOR UNKNOWN INDICATION
     Dosage: 30 DF, QD (30 TABLET, 1 ONLY)
     Route: 048
     Dates: start: 20210630, end: 20210630

REACTIONS (3)
  - Exposure via ingestion [Unknown]
  - Intentional product use issue [Unknown]
  - Suicidal behaviour [Unknown]

NARRATIVE: CASE EVENT DATE: 20210630
